FAERS Safety Report 18785251 (Version 2)
Quarter: 2021Q1

REPORT INFORMATION
  Report Type: Report from Study
  Country: US (occurrence: US)
  Receive Date: 20210125
  Receipt Date: 20210205
  Transmission Date: 20210419
  Serious: Yes (Hospitalization, Other)
  Sender: FDA-Public Use
  Company Number: US-SHIRE-US202029779

PATIENT
  Sex: Female
  Weight: 11.1 kg

DRUGS (12)
  1. TEDUGLUTIDE [Suspect]
     Active Substance: TEDUGLUTIDE
     Indication: FUNCTIONAL GASTROINTESTINAL DISORDER
     Dosage: 0.415 MILLIGRAM, QD
     Route: 058
     Dates: start: 20200217
  2. TEDUGLUTIDE [Suspect]
     Active Substance: TEDUGLUTIDE
     Indication: SHORT-BOWEL SYNDROME
     Dosage: 0.04 MILLIGRAM, QD
     Route: 058
     Dates: start: 20200217
  3. TEDUGLUTIDE [Suspect]
     Active Substance: TEDUGLUTIDE
     Indication: FUNCTIONAL GASTROINTESTINAL DISORDER
     Dosage: 0.415 MILLIGRAM, QD
     Route: 058
     Dates: start: 20200217
  4. TEDUGLUTIDE [Suspect]
     Active Substance: TEDUGLUTIDE
     Dosage: 0.05 MILLIGRAM, QD
     Route: 058
     Dates: start: 20201116
  5. TEDUGLUTIDE [Suspect]
     Active Substance: TEDUGLUTIDE
     Indication: FUNCTIONAL GASTROINTESTINAL DISORDER
     Dosage: 0.415 MILLIGRAM, QD
     Route: 058
     Dates: start: 20200217
  6. TEDUGLUTIDE [Suspect]
     Active Substance: TEDUGLUTIDE
     Dosage: 0.05 MILLIGRAM, QD
     Route: 058
     Dates: start: 20201116
  7. TEDUGLUTIDE [Suspect]
     Active Substance: TEDUGLUTIDE
     Indication: SHORT-BOWEL SYNDROME
     Dosage: 0.04 MILLIGRAM, QD
     Route: 058
     Dates: start: 20200217
  8. TEDUGLUTIDE [Suspect]
     Active Substance: TEDUGLUTIDE
     Indication: SHORT-BOWEL SYNDROME
     Dosage: 0.04 MILLIGRAM, QD
     Route: 058
     Dates: start: 20200217
  9. TEDUGLUTIDE [Suspect]
     Active Substance: TEDUGLUTIDE
     Indication: SHORT-BOWEL SYNDROME
     Dosage: 0.04 MILLIGRAM, QD
     Route: 058
     Dates: start: 20200217
  10. TEDUGLUTIDE [Suspect]
     Active Substance: TEDUGLUTIDE
     Indication: FUNCTIONAL GASTROINTESTINAL DISORDER
     Dosage: 0.415 MILLIGRAM, QD
     Route: 058
     Dates: start: 20200217
  11. TEDUGLUTIDE [Suspect]
     Active Substance: TEDUGLUTIDE
     Dosage: 0.05 MILLIGRAM, QD
     Route: 058
     Dates: start: 20201116
  12. TEDUGLUTIDE [Suspect]
     Active Substance: TEDUGLUTIDE
     Dosage: 0.05 MILLIGRAM, QD
     Route: 058
     Dates: start: 20201116

REACTIONS (7)
  - Proteinuria [Recovering/Resolving]
  - Vomiting [Unknown]
  - Hypoalbuminaemia [Recovering/Resolving]
  - Abdominal distension [Unknown]
  - Vascular device infection [Recovered/Resolved]
  - Enterobacter bacteraemia [Recovered/Resolved]
  - Transfusion reaction [Recovered/Resolved]
